FAERS Safety Report 6297616-7 (Version None)
Quarter: 2009Q3

REPORT INFORMATION
  Report Type: 
  Country: None (occurrence: None)
  Receive Date: 20090805
  Receipt Date: 20090724
  Transmission Date: 20100115
  Serious: Yes (Hospitalization)
  Sender: FDA-Public Use
  Company Number: JP-PFIZER INC-2009245256

PATIENT
  Age: 60 Year

DRUGS (5)
  1. ADRIACIN [Suspect]
     Indication: NON-HODGKIN'S LYMPHOMA
     Dosage: 50 MG/M2
  2. PREDNISOLONE AND PREDNISOLONE STEAGLATE [Suspect]
     Indication: NON-HODGKIN'S LYMPHOMA
     Dosage: 100 MG
     Route: 048
  3. RITUXAN [Suspect]
     Indication: NON-HODGKIN'S LYMPHOMA
     Dosage: 375 MG/M2
     Route: 042
  4. ENDOXAN [Suspect]
     Indication: NON-HODGKIN'S LYMPHOMA
     Dosage: 750 MG/M2
     Route: 042
  5. ONCOVIN [Suspect]
     Indication: NON-HODGKIN'S LYMPHOMA
     Dosage: 1.4 MG/M2
     Route: 042

REACTIONS (3)
  - ANAEMIA [None]
  - GASTROINTESTINAL FISTULA [None]
  - INTESTINAL OBSTRUCTION [None]
